FAERS Safety Report 13739043 (Version 3)
Quarter: 2018Q2

REPORT INFORMATION
  Report Type: Spontaneous
  Country: US (occurrence: US)
  Receive Date: 20170710
  Receipt Date: 20180517
  Transmission Date: 20180711
  Serious: Yes (Hospitalization, Other)
  Sender: FDA-Public Use
  Company Number: US-SAOL THERAPEUTICS-2017SAO00560

PATIENT
  Age: 60 Year
  Sex: Female

DRUGS (12)
  1. BACLOFEN. [Suspect]
     Active Substance: BACLOFEN
     Dosage: 998.8 ?G, \DAY
     Route: 037
  2. FENTANYL. [Suspect]
     Active Substance: FENTANYL
     Dosage: 28.749 MG, \DAY
  3. FENTANYL. [Suspect]
     Active Substance: FENTANYL
     Dosage: 28.713 ?G, \DAY
     Route: 037
  4. BACLOFEN. [Suspect]
     Active Substance: BACLOFEN
     Indication: MUSCLE SPASTICITY
     Dosage: 1150.0 ?G, \DAY
  5. DILAUDID [Suspect]
     Active Substance: HYDROMORPHONE HYDROCHLORIDE
     Route: 037
  6. BACLOFEN. [Suspect]
     Active Substance: BACLOFEN
     Dosage: 1148.50 ?G, \DAY
     Route: 037
  7. DILAUDID [Suspect]
     Active Substance: HYDROMORPHONE HYDROCHLORIDE
     Dosage: 0.19976 MG, \DAY
  8. FENTANYL. [Suspect]
     Active Substance: FENTANYL
     Dosage: 24.971 MG, \DAY
  9. DILAUDID [Suspect]
     Active Substance: HYDROMORPHONE HYDROCHLORIDE
     Dosage: 0.22999 UNK, UNK
  10. DILAUDID [Suspect]
     Active Substance: HYDROMORPHONE HYDROCHLORIDE
     Dosage: 0.22970 MG, \DAY
     Route: 037
  11. FENTANYL. [Suspect]
     Active Substance: FENTANYL
     Route: 037
  12. BACLOFEN. [Suspect]
     Active Substance: BACLOFEN
     Route: 037

REACTIONS (11)
  - Atrial fibrillation [Not Recovered/Not Resolved]
  - Overdose [Unknown]
  - Cataract [Unknown]
  - Pain [Unknown]
  - Complication associated with device [Unknown]
  - Therapy non-responder [Unknown]
  - Mental status changes [Unknown]
  - Restlessness [Unknown]
  - Hypoaesthesia [Unknown]
  - Paraesthesia [Unknown]
  - Gait disturbance [Unknown]

NARRATIVE: CASE EVENT DATE: 2017
